FAERS Safety Report 12410250 (Version 2)
Quarter: 2016Q3

REPORT INFORMATION
  Report Type: Spontaneous
  Country: US (occurrence: US)
  Receive Date: 20160527
  Receipt Date: 20160707
  Transmission Date: 20161109
  Serious: No
  Sender: FDA-Public Use
  Company Number: US-009507513-1605USA005728

PATIENT
  Age: 22 Year
  Sex: Female

DRUGS (1)
  1. NEXPLANON [Suspect]
     Active Substance: ETONOGESTREL
     Indication: CONTRACEPTION
     Dosage: ^3 YEAR IMPLANT^; ^IMPLANT IS IN LEFT ARM^
     Route: 059
     Dates: start: 20131125

REACTIONS (2)
  - Menstruation irregular [Unknown]
  - Pain [Unknown]

NARRATIVE: CASE EVENT DATE: 20131125
